FAERS Safety Report 24086968 (Version 1)
Quarter: 2024Q3

REPORT INFORMATION
  Report Type: Spontaneous
  Country: US (occurrence: US)
  Receive Date: 20240713
  Receipt Date: 20240713
  Transmission Date: 20241017
  Serious: Yes (Other)
  Sender: ABBVIE
  Company Number: US-ABBVIE-5835519

PATIENT
  Sex: Female

DRUGS (1)
  1. TIMOLOL [Suspect]
     Active Substance: TIMOLOL
     Indication: Glaucoma
     Dosage: DOSE: 1 DROP EACH EYE; ?FORM STRENGTH WAS 0.5 PERCENT
     Route: 047
     Dates: start: 2008

REACTIONS (6)
  - Cataract [Unknown]
  - Drug ineffective [Not Recovered/Not Resolved]
  - Vision blurred [Unknown]
  - Expired product administered [Not Recovered/Not Resolved]
  - Product label on wrong product [Recovered/Resolved]
  - Product label on wrong product [Not Recovered/Not Resolved]

NARRATIVE: CASE EVENT DATE: 20090101
